FAERS Safety Report 5587309-3 (Version None)
Quarter: 2008Q1

REPORT INFORMATION
  Report Type: 
  Country: None (occurrence: None)
  Receive Date: 20080107
  Receipt Date: 20071221
  Transmission Date: 20080703
  Serious: Yes (Other)
  Sender: FDA-Public Use
  Company Number: 2008US000025

PATIENT
  Age: 19 Year
  Sex: Male

DRUGS (2)
  1. AMBISOME [Suspect]
     Indication: SYSTEMIC MYCOSIS
     Dosage: 135 MG, UID/QD; IV NOS
     Route: 042
     Dates: start: 20071003, end: 20071003
  2. OMEGACIN (BIAPENEM) [Concomitant]

REACTIONS (1)
  - ANAPHYLACTIC SHOCK [None]
